FAERS Safety Report 7374647-7 (Version None)
Quarter: 2011Q1

REPORT INFORMATION
  Report Type: 
  Country: None (occurrence: None)
  Receive Date: 20110325
  Receipt Date: 20100611
  Transmission Date: 20110831
  Serious: No
  Sender: FDA-Public Use
  Company Number: US-MYLANLABS-2010S1010456

PATIENT
  Age: 60 Year
  Sex: Female
  Weight: 38.56 kg

DRUGS (4)
  1. FENTANYL-100 [Suspect]
     Indication: NECK PAIN
     Dosage: CHANGED Q72H
     Route: 062
     Dates: start: 20100601, end: 20100601
  2. FENTANYL-100 [Suspect]
     Dosage: CHANGED Q72H
     Route: 062
     Dates: start: 20100601
  3. TYLENOL ALLERGY SINUS (MULTI-SYMPTOM RELIEF) [Concomitant]
     Indication: SEASONAL ALLERGY
  4. MOTRIN [Concomitant]

REACTIONS (6)
  - PAIN [None]
  - DRUG INEFFECTIVE [None]
  - HEADACHE [None]
  - ANXIETY [None]
  - RESTLESS LEGS SYNDROME [None]
  - NAUSEA [None]
